FAERS Safety Report 8913435 (Version 1)
Quarter: 2012Q4

REPORT INFORMATION
  Report Type: 
  Country: US (occurrence: US)
  Receive Date: 20121119
  Receipt Date: 20121119
  Transmission Date: 20130627
  Serious: No
  Sender: FDA-Public Use
  Company Number: US-TEVA-370832USA

PATIENT
  Sex: Male
  Weight: 90.8 kg

DRUGS (5)
  1. PROAIR HFA [Suspect]
     Indication: ASTHMA EXERCISE INDUCED
     Route: 055
  2. ATENOLOL [Concomitant]
     Indication: HYPERTENSION
     Dosage: 12.5 Milligram Daily;
     Route: 048
     Dates: start: 201210
  3. LISINOPRIL [Concomitant]
     Indication: HYPERTENSION
     Dosage: 10 Milligram Daily;
     Route: 048
  4. ALLOPURINOL [Concomitant]
     Indication: PROPHYLAXIS
     Dosage: 100 Milligram Daily;
     Route: 048
  5. MONTELUKAST [Concomitant]
     Indication: ASTHMA EXERCISE INDUCED
     Dosage: 10 Milligram Daily;
     Route: 048

REACTIONS (1)
  - Heart rate increased [Recovered/Resolved]
